FAERS Safety Report 9591133 (Version 1)
Quarter: 2013Q4

REPORT INFORMATION
  Report Type: Spontaneous
  Country: US (occurrence: US)
  Receive Date: 20131003
  Receipt Date: 20131003
  Transmission Date: 20140711
  Serious: No
  Sender: FDA-Public Use
  Company Number: US-AMGEN-USASP2012076622

PATIENT
  Age: 62 Year
  Sex: Female
  Weight: 65.76 kg

DRUGS (8)
  1. ENBREL [Suspect]
     Indication: PRODUCT USED FOR UNKNOWN INDICATION
     Dosage: 50 MG, QWK
     Route: 058
  2. CEREBREX [Concomitant]
     Dosage: 100 MG, UNK
  3. METHOTREXATE [Concomitant]
     Dosage: 100/4 ML UNK
  4. CLIMARA [Concomitant]
     Dosage: 0.025 MG, UNK DIS
  5. VIT D [Concomitant]
     Dosage: UNK HIGH CAP POTENCY
  6. TYLENOL                            /00020001/ [Concomitant]
     Dosage: 650 MG, UNK 8 HR
  7. FOLIC ACID [Concomitant]
     Dosage: 20 MG, UNK
  8. BABY ASPIRIN [Concomitant]
     Dosage: 81 MG, UNK

REACTIONS (1)
  - Muscular weakness [Unknown]
